FAERS Safety Report 19469537 (Version 2)
Quarter: 2021Q3

REPORT INFORMATION
  Report Type: Report from Study
  Country: US (occurrence: US)
  Receive Date: 20210628
  Receipt Date: 20210730
  Transmission Date: 20211014
  Serious: No
  Sender: FDA-Public Use
  Company Number: NVSC2021US132863

PATIENT
  Age: 59 Year
  Sex: Female

DRUGS (3)
  1. ENTRESTO [Suspect]
     Active Substance: SACUBITRIL\VALSARTAN
     Dosage: 0.5 DF, QD (24/26 MG)
     Route: 048
     Dates: start: 20200515
  2. ENTRESTO [Suspect]
     Active Substance: SACUBITRIL\VALSARTAN
     Dosage: 24.26 MG (ONE HALF TABLET)
     Route: 048
     Dates: start: 20210515
  3. ENTRESTO [Suspect]
     Active Substance: SACUBITRIL\VALSARTAN
     Indication: CARDIAC FAILURE
     Dosage: 50 MG, BID (24/26 MG)
     Route: 048
     Dates: start: 202005

REACTIONS (6)
  - Inappropriate schedule of product administration [Unknown]
  - Weight fluctuation [Unknown]
  - Feeling abnormal [Recovered/Resolved]
  - Dizziness postural [Recovered/Resolved]
  - Hypotension [Recovered/Resolved]
  - Wrong technique in product usage process [Unknown]

NARRATIVE: CASE EVENT DATE: 20200501
